FAERS Safety Report 26075677 (Version 2)
Quarter: 2025Q4

REPORT INFORMATION
  Report Type: Report from Study
  Country: CA (occurrence: CA)
  Receive Date: 20251121
  Receipt Date: 20251201
  Transmission Date: 20260117
  Serious: Yes (Hospitalization)
  Sender: LUNDBECK
  Company Number: CA-LUNDBECK-DKLU4018794

PATIENT
  Age: 44 Year
  Sex: Female

DRUGS (5)
  1. VYEPTI [Suspect]
     Active Substance: EPTINEZUMAB-JJMR
     Indication: Migraine
     Dosage: 100 MILLIGRAM
     Route: 041
     Dates: start: 20230207, end: 20230505
  2. VYEPTI [Suspect]
     Active Substance: EPTINEZUMAB-JJMR
     Dosage: 300 MILLIGRAM
     Route: 041
     Dates: start: 20230505
  3. AVENTYL [Suspect]
     Active Substance: NORTRIPTYLINE HYDROCHLORIDE
     Indication: Migraine
     Dosage: 100 MILLIGRAM
  4. EFFEXOR [Suspect]
     Active Substance: VENLAFAXINE HYDROCHLORIDE
     Indication: Migraine
     Dosage: 150 MILLIGRAM
  5. TOPIRAMATE [Suspect]
     Active Substance: TOPIRAMATE
     Indication: Migraine
     Dosage: 100 MILLIGRAM

REACTIONS (2)
  - Dehydration [Unknown]
  - Diarrhoea [Unknown]

NARRATIVE: CASE EVENT DATE: 20250601
